FAERS Safety Report 24417946 (Version 2)
Quarter: 2024Q4

REPORT INFORMATION
  Report Type: Spontaneous
  Country: BR (occurrence: BR)
  Receive Date: 20241009
  Receipt Date: 20241018
  Transmission Date: 20250114
  Serious: Yes (Other)
  Sender: ASTELLAS
  Company Number: BR-ASTELLAS-2024-AER-010226

PATIENT
  Age: 70 Year
  Sex: Male

DRUGS (2)
  1. MIRABEGRON [Suspect]
     Active Substance: MIRABEGRON
     Indication: Micturition urgency
     Route: 048
     Dates: start: 2019, end: 2019
  2. MIRABEGRON [Suspect]
     Active Substance: MIRABEGRON
     Route: 065
     Dates: start: 20240907, end: 20240930

REACTIONS (7)
  - Prostate cancer [Recovered/Resolved]
  - Anal fissure [Recovered/Resolved]
  - Faeces hard [Recovered/Resolved]
  - Anal haemorrhage [Recovered/Resolved]
  - Post procedural urine leak [Unknown]
  - Faeces hard [Unknown]
  - Anal haemorrhage [Unknown]

NARRATIVE: CASE EVENT DATE: 20190101
